FAERS Safety Report 18698535 (Version 1)
Quarter: 2021Q1

REPORT INFORMATION
  Report Type: Spontaneous
  Country: GB (occurrence: GB)
  Receive Date: 20210105
  Receipt Date: 20210105
  Transmission Date: 20210419
  Serious: Yes (Hospitalization, Other)
  Sender: FDA-Public Use
  Company Number: GB-TEVA-2020-GB-1815037

PATIENT
  Age: 61 Year
  Sex: Male

DRUGS (4)
  1. WARFARIN [Suspect]
     Active Substance: WARFARIN
     Indication: ANTICOAGULANT THERAPY
     Route: 065
  2. TACROLIMUS. [Suspect]
     Active Substance: TACROLIMUS
     Indication: IMMUNOSUPPRESSION
     Route: 065
  3. VANCOMYCIN [Concomitant]
     Active Substance: VANCOMYCIN
     Route: 065
  4. TEMOCILLIN [Interacting]
     Active Substance: TEMOCILLIN
     Indication: EVIDENCE BASED TREATMENT
     Route: 065

REACTIONS (3)
  - Nephropathy [Recovered/Resolved]
  - Acute kidney injury [Recovered/Resolved]
  - Potentiating drug interaction [Unknown]
